FAERS Safety Report 18060906 (Version 1)
Quarter: 2020Q3

REPORT INFORMATION
  Report Type: Spontaneous
  Country: GB (occurrence: GB)
  Receive Date: 20200723
  Receipt Date: 20200723
  Transmission Date: 20201103
  Serious: Yes (Congenital Anomaly)
  Sender: FDA-Public Use
  Company Number: GB-TEVA-2020-GB-1803816

PATIENT
  Sex: Female

DRUGS (1)
  1. CABERGOLINE. [Suspect]
     Active Substance: CABERGOLINE
     Dosage: 500 MCG PER WEEK
     Route: 064

REACTIONS (3)
  - Speech disorder developmental [Not Recovered/Not Resolved]
  - Sensory processing disorder [Not Recovered/Not Resolved]
  - Foetal exposure during pregnancy [Unknown]
